FAERS Safety Report 7393546-8 (Version None)
Quarter: 2011Q1

REPORT INFORMATION
  Report Type: 
  Country: None (occurrence: None)
  Receive Date: 20110331
  Receipt Date: 20110331
  Transmission Date: 20110831
  Serious: No
  Sender: FDA-Public Use
  Company Number: None

PATIENT
  Age: 63 Year
  Sex: Male

DRUGS (1)
  1. AMOXICILLIN AND CLAVULANATE POTASSIUM [Suspect]
     Dates: start: 20091130, end: 20091210

REACTIONS (3)
  - ANTINUCLEAR ANTIBODY POSITIVE [None]
  - LIVER INJURY [None]
  - HEPATIC STEATOSIS [None]
